FAERS Safety Report 24119488 (Version 1)
Quarter: 2024Q3

REPORT INFORMATION
  Report Type: Spontaneous
  Country: SG (occurrence: SG)
  Receive Date: 20240722
  Receipt Date: 20240722
  Transmission Date: 20241017
  Serious: Yes (Death, Hospitalization, Other)
  Sender: ASTELLAS
  Company Number: SG-ROCHE-10000025803

PATIENT
  Age: 80 Year
  Sex: Male
  Weight: 58 kg

DRUGS (27)
  1. ERLOTINIB [Suspect]
     Active Substance: ERLOTINIB
     Indication: Anaemia
     Dosage: UNK UNK, UNKNOWN FREQ.
     Route: 065
  2. ERLOTINIB [Suspect]
     Active Substance: ERLOTINIB
     Indication: Chronic obstructive pulmonary disease
  3. ERLOTINIB [Suspect]
     Active Substance: ERLOTINIB
     Indication: Gastritis
  4. ERLOTINIB [Suspect]
     Active Substance: ERLOTINIB
     Indication: Hepatic cancer
  5. ERLOTINIB [Suspect]
     Active Substance: ERLOTINIB
     Indication: Hyperlipidaemia
  6. ERLOTINIB [Suspect]
     Active Substance: ERLOTINIB
     Indication: Hypertension
  7. ERLOTINIB [Suspect]
     Active Substance: ERLOTINIB
     Indication: Myocardial ischaemia
  8. ERLOTINIB [Suspect]
     Active Substance: ERLOTINIB
     Indication: Oedema peripheral
  9. SORAFENIB [Suspect]
     Active Substance: SORAFENIB
     Indication: Anaemia
     Dosage: UNK UNK, UNKNOWN FREQ.
     Route: 065
  10. SORAFENIB [Suspect]
     Active Substance: SORAFENIB
     Indication: Chronic obstructive pulmonary disease
  11. SORAFENIB [Suspect]
     Active Substance: SORAFENIB
     Indication: Gastritis
  12. SORAFENIB [Suspect]
     Active Substance: SORAFENIB
     Indication: Hepatic cancer
  13. SORAFENIB [Suspect]
     Active Substance: SORAFENIB
     Indication: Hyperlipidaemia
  14. SORAFENIB [Suspect]
     Active Substance: SORAFENIB
     Indication: Hypertension
  15. SORAFENIB [Suspect]
     Active Substance: SORAFENIB
     Indication: Myocardial ischaemia
  16. SORAFENIB [Suspect]
     Active Substance: SORAFENIB
     Indication: Oedema peripheral
  17. ISOSORBIDE DINITRATE [Concomitant]
     Active Substance: ISOSORBIDE DINITRATE
     Indication: Product used for unknown indication
     Dosage: UNK UNK, UNKNOWN FREQ.
     Route: 065
  18. ATROVENT [Concomitant]
     Active Substance: IPRATROPIUM BROMIDE
     Indication: Product used for unknown indication
     Dosage: UNK UNK, UNKNOWN FREQ.
     Route: 065
  19. MAGNESIUM HYDROXIDE [Concomitant]
     Active Substance: MAGNESIUM HYDROXIDE
     Indication: Product used for unknown indication
     Dosage: UNK UNK, UNKNOWN FREQ.
     Route: 065
  20. FERROUS FUMARATE [Concomitant]
     Active Substance: FERROUS FUMARATE
     Indication: Product used for unknown indication
     Dosage: UNK UNK, UNKNOWN FREQ.
     Route: 065
  21. BECLOMETHASONE DIPROPIONATE [Concomitant]
     Active Substance: BECLOMETHASONE DIPROPIONATE
     Indication: Product used for unknown indication
     Dosage: UNK UNK, UNKNOWN FREQ.
     Route: 065
  22. AMLODIPINE [Concomitant]
     Active Substance: AMLODIPINE BESYLATE
     Indication: Product used for unknown indication
     Dosage: UNK UNK, UNKNOWN FREQ.
     Route: 065
  23. RANITIDINE [Concomitant]
     Active Substance: RANITIDINE
     Indication: Product used for unknown indication
     Dosage: UNK UNK, UNKNOWN FREQ.
     Route: 065
  24. LASIX [Concomitant]
     Active Substance: FUROSEMIDE
     Indication: Product used for unknown indication
     Dosage: UNK UNK, UNKNOWN FREQ.
     Route: 065
  25. ASPIRIN [Concomitant]
     Active Substance: ASPIRIN
     Indication: Product used for unknown indication
     Dosage: UNK UNK, UNKNOWN FREQ.
     Route: 065
  26. ALBUTEROL [Concomitant]
     Active Substance: ALBUTEROL
     Indication: Product used for unknown indication
     Dosage: UNK UNK, UNKNOWN FREQ.
     Route: 065
  27. SIMVASTATIN [Concomitant]
     Active Substance: SIMVASTATIN
     Indication: Product used for unknown indication
     Dosage: UNK UNK, UNKNOWN FREQ.
     Route: 065

REACTIONS (14)
  - Vomiting [Fatal]
  - Lethargy [Fatal]
  - Abdominal pain [Fatal]
  - Constipation [Fatal]
  - Pneumonia [Fatal]
  - Aspartate aminotransferase increased [Fatal]
  - Anaemia [Fatal]
  - Pyrexia [Fatal]
  - Cardiac failure congestive [Fatal]
  - Diarrhoea [Fatal]
  - Pulmonary oedema [Fatal]
  - Acute myocardial infarction [Fatal]
  - Decreased appetite [Fatal]
  - Blood bilirubin increased [Fatal]

NARRATIVE: CASE EVENT DATE: 20091002
